FAERS Safety Report 10701880 (Version 3)
Quarter: 2015Q1

REPORT INFORMATION
  Report Type: Report from Study
  Country: FR (occurrence: FR)
  Receive Date: 20150109
  Receipt Date: 20150324
  Transmission Date: 20150721
  Serious: Yes (Hospitalization)
  Sender: FDA-Public Use
  Company Number: US-ASTRAZENECA-2014SE91159

PATIENT
  Age: 303 Day
  Sex: Male
  Weight: 8.3 kg

DRUGS (4)
  1. SYNAGIS [Suspect]
     Active Substance: PALIVIZUMAB
     Indication: ANTIVIRAL PROPHYLAXIS
     Route: 030
     Dates: start: 20141205, end: 20150205
  2. SYNAGIS [Suspect]
     Active Substance: PALIVIZUMAB
     Indication: ANTIVIRAL PROPHYLAXIS
     Route: 030
     Dates: start: 20150227, end: 20150227
  3. SYNAGIS [Suspect]
     Active Substance: PALIVIZUMAB
     Indication: ANTIVIRAL PROPHYLAXIS
     Dosage: 1 DF PER 28 DAYS
     Route: 030
     Dates: start: 20141017, end: 20141017
  4. SYNAGIS [Suspect]
     Active Substance: PALIVIZUMAB
     Indication: ANTIVIRAL PROPHYLAXIS
     Dosage: 1 DF PER 28 DAYS
     Route: 030
     Dates: start: 20141107, end: 20141107

REACTIONS (7)
  - Loss of consciousness [Recovered/Resolved]
  - Vomiting [Recovered/Resolved]
  - Presyncope [Recovered/Resolved]
  - Bacterial infection [Recovering/Resolving]
  - Haemophilus infection [Recovered/Resolved]
  - Pyrexia [Recovered/Resolved]
  - Otitis media acute [Recovered/Resolved]

NARRATIVE: CASE EVENT DATE: 20141021
